FAERS Safety Report 4689749-3 (Version None)
Quarter: 2005Q2

REPORT INFORMATION
  Report Type: 
  Country: None (occurrence: None)
  Receive Date: 20050613
  Receipt Date: 20050613
  Transmission Date: 20051028
  Serious: Yes (Hospitalization, Disabling)
  Sender: FDA-Public Use
  Company Number: None

PATIENT
  Age: 32 Year
  Sex: Male
  Weight: 88.4514 kg

DRUGS (1)
  1. ACCUTANE [Suspect]
     Indication: ACNE CYSTIC
     Dosage: 40 MG P/DAY/20 WEEKS ORAL
     Route: 048
     Dates: start: 19940101, end: 19940501

REACTIONS (2)
  - ACUTE PSYCHOSIS [None]
  - SUICIDE ATTEMPT [None]
